FAERS Safety Report 8045240-8 (Version None)
Quarter: 2012Q1

REPORT INFORMATION
  Report Type: 
  Country: None (occurrence: None)
  Receive Date: 20120113
  Receipt Date: 20120110
  Transmission Date: 20120608
  Serious: Yes (Hospitalization)
  Sender: FDA-Public Use
  Company Number: US-ELI_LILLY_AND_COMPANY-US201108008576

PATIENT
  Sex: Male
  Weight: 171 kg

DRUGS (15)
  1. PEMETREXED [Suspect]
     Indication: HEAD AND NECK CANCER
     Dosage: 500 MG/M2, DAY 1 EVERY 21 DAYS
     Route: 042
     Dates: start: 20110823, end: 20110913
  2. CETUXIMAB [Suspect]
     Dosage: 400 MG/M2, LOADING DOSE DAY 1 EVERY 21 DAYS
     Route: 042
     Dates: start: 20110913
  3. ALOXI [Concomitant]
     Indication: ANTIEMETIC SUPPORTIVE CARE
     Dosage: UNK
     Dates: start: 20110823, end: 20110823
  4. CETUXIMAB [Suspect]
     Dosage: 250 MG/M2, WEEKLY (1/W)
     Route: 042
  5. BENADRYL [Concomitant]
     Indication: PREMEDICATION
     Dosage: UNK
     Dates: start: 20110823, end: 20110823
  6. CETUXIMAB [Suspect]
     Dosage: 250 MG/M2, WEEKLY (1/W)
     Route: 042
     Dates: end: 20110830
  7. CARBOPLATIN [Suspect]
     Indication: HEAD AND NECK CANCER
     Dosage: 5 AUC, DAY 1 EVERY 21 DAYS
     Dates: start: 20110823, end: 20110913
  8. VITAMIN B-12 [Concomitant]
     Indication: PROPHYLAXIS
     Dosage: UNK
     Dates: start: 20110816
  9. CETUXIMAB [Suspect]
     Indication: HEAD AND NECK CANCER
     Dosage: 400 MG/M2, LOADING DOSE DAY 1 EVERY 21 DAYS
     Route: 042
     Dates: start: 20110823, end: 20110830
  10. CARBOPLATIN [Suspect]
     Dosage: 5 AUC, DAY 1 EVERY 21 DAYS
     Route: 042
     Dates: start: 20110920
  11. FOLIC ACID [Concomitant]
     Indication: PROPHYLAXIS
     Dosage: UNK
     Dates: start: 20110816
  12. DEMEROL [Concomitant]
     Indication: CHILLS
     Dosage: UNK
     Dates: start: 20110823, end: 20110823
  13. PEMETREXED [Suspect]
     Dosage: 500 MG/M2, DAY 1 EVERY 21 DAYS
     Route: 042
     Dates: start: 20110920
  14. SOLU-MEDROL [Concomitant]
     Indication: HYPERSENSITIVITY
     Dosage: UNK
     Dates: start: 20110823, end: 20110823
  15. DECADRON [Concomitant]
     Indication: PREMEDICATION
     Dosage: UNK
     Dates: start: 20110823, end: 20110824

REACTIONS (2)
  - PLEURISY [None]
  - PNEUMONIA [None]
